FAERS Safety Report 8909381 (Version 1)
Quarter: 2012Q4

REPORT INFORMATION
  Report Type: Spontaneous
  Country: GB (occurrence: None)
  Receive Date: 20121107
  Receipt Date: 20121107
  Transmission Date: 20130627
  Serious: Yes (Other)
  Sender: FDA-Public Use
  Company Number: AUR-APL-2012-04672

PATIENT
  Age: 26 Year
  Sex: Female

DRUGS (1)
  1. QUETIAPINE [Suspect]
     Indication: PSYCHOSIS

REACTIONS (7)
  - Treatment noncompliance [None]
  - Hallucination, auditory [None]
  - Dizziness [None]
  - Nausea [None]
  - Hypersomnia [None]
  - Thinking abnormal [None]
  - Abnormal behaviour [None]
